FAERS Safety Report 6993575-X (Version None)
Quarter: 2010Q3

REPORT INFORMATION
  Report Type: 
  Country: None (occurrence: None)
  Receive Date: 20100917
  Receipt Date: 20100906
  Transmission Date: 20110219
  Serious: Yes (Other)
  Sender: FDA-Public Use
  Company Number: PHHY2010JP59426

PATIENT

DRUGS (1)
  1. GLEEVEC [Suspect]
     Route: 048

REACTIONS (5)
  - CEREBRAL INFARCTION [None]
  - DEMENTIA [None]
  - HEMIPARESIS [None]
  - LACUNAR INFARCTION [None]
  - SPEECH DISORDER [None]
